FAERS Safety Report 8489007-5 (Version None)
Quarter: 2012Q3

REPORT INFORMATION
  Report Type: 
  Country: None (occurrence: None)
  Receive Date: 20120705
  Receipt Date: 20120702
  Transmission Date: 20120928
  Serious: No
  Sender: FDA-Public Use
  Company Number: US-PFIZER INC-2012159495

PATIENT
  Age: 54 Year
  Sex: Female
  Weight: 45.351 kg

DRUGS (4)
  1. METFORMIN [Concomitant]
     Indication: DIABETES MELLITUS
     Dosage: 1000 MG, 2X/DAY
  2. TOVIAZ [Suspect]
     Indication: HYPERTONIC BLADDER
     Dosage: 4 MG, DAILY
     Dates: start: 20120501, end: 20120101
  3. GLYBURIDE [Concomitant]
     Indication: DIABETES MELLITUS
     Dosage: 10 MG, DAILY
  4. LISINOPRIL [Concomitant]
     Indication: PROPHYLAXIS
     Dosage: 5 MG, DAILY

REACTIONS (1)
  - DRY MOUTH [None]
